FAERS Safety Report 7503196-8 (Version None)
Quarter: 2011Q2

REPORT INFORMATION
  Report Type: 
  Country: None (occurrence: None)
  Receive Date: 20110525
  Receipt Date: 20110519
  Transmission Date: 20111010
  Serious: Yes (Hospitalization)
  Sender: FDA-Public Use
  Company Number: US-GILEAD-2011-0039535

PATIENT
  Sex: Male

DRUGS (1)
  1. LETAIRIS [Suspect]
     Indication: PULMONARY HYPERTENSION
     Route: 048
     Dates: start: 20110427

REACTIONS (6)
  - ATRIAL FIBRILLATION [None]
  - OEDEMA PERIPHERAL [None]
  - DYSPNOEA [None]
  - WHEEZING [None]
  - CARDIAC FAILURE CONGESTIVE [None]
  - COUGH [None]
